FAERS Safety Report 4484508-9 (Version None)
Quarter: 2004Q3

REPORT INFORMATION
  Report Type: 
  Country: None (occurrence: None)
  Receive Date: 20040921
  Receipt Date: 20040213
  Transmission Date: 20050211
  Serious: Yes (Hospitalization)
  Sender: FDA-Public Use
  Company Number: 163-20785-031203240

PATIENT
  Age: 78 Year
  Sex: Male

DRUGS (5)
  1. THALOMID [Suspect]
     Indication: MULTIPLE MYELOMA
     Dosage: 200 MG, DAILY, ORAL
     Route: 048
     Dates: start: 20030506, end: 20030607
  2. IRON (IRON) [Concomitant]
  3. LIPITOR [Concomitant]
  4. COUMADIN [Concomitant]
  5. PREDNISONE [Concomitant]

REACTIONS (1)
  - DIARRHOEA [None]
